FAERS Safety Report 20357464 (Version 2)
Quarter: 2022Q1

REPORT INFORMATION
  Report Type: Spontaneous
  Country: US (occurrence: US)
  Receive Date: 20220120
  Receipt Date: 20220124
  Transmission Date: 20220424
  Serious: No
  Sender: FDA-Public Use
  Company Number: US-PERRIGO-21US004499

PATIENT
  Sex: Female

DRUGS (2)
  1. TRETINOIN [Suspect]
     Active Substance: TRETINOIN
     Indication: Product used for unknown indication
     Dosage: UNKNOWN, AT NIGHT
     Route: 061
     Dates: start: 20210329, end: 20210329
  2. TRETINOIN [Suspect]
     Active Substance: TRETINOIN
     Indication: Accidental exposure to product
     Dosage: UNKNOWN, UNKNOWN
     Route: 047
     Dates: start: 20210330, end: 20210330

REACTIONS (2)
  - Eye irritation [Unknown]
  - Accidental exposure to product [Recovered/Resolved]

NARRATIVE: CASE EVENT DATE: 20210330
